FAERS Safety Report 23517926 (Version 1)
Quarter: 2024Q1

REPORT INFORMATION
  Report Type: Report from Study
  Country: US (occurrence: US)
  Receive Date: 20240213
  Receipt Date: 20240213
  Transmission Date: 20240409
  Serious: Yes (Hospitalization)
  Sender: FDA-Public Use
  Company Number: US-Eisai-EC-2024-159176

PATIENT
  Age: 68 Year
  Sex: Female

DRUGS (3)
  1. LENVIMA [Suspect]
     Active Substance: LENVATINIB
     Indication: Ovarian cancer
     Dosage: DR HELD LENVIMA FOR 1 WEEK
     Route: 048
     Dates: start: 20230530, end: 202308
  2. LENVIMA [Suspect]
     Active Substance: LENVATINIB
     Dosage: LENVIMA WAS HELD FOR 5 OR 6 DAYS WHILE IN THE HOSPITAL.
     Route: 048
     Dates: start: 2023, end: 202401
  3. LENVIMA [Suspect]
     Active Substance: LENVATINIB
     Route: 048
     Dates: start: 20240111

REACTIONS (3)
  - Asthenia [Unknown]
  - Pleural effusion [Unknown]
  - Blood sodium decreased [Unknown]

NARRATIVE: CASE EVENT DATE: 20240103
